FAERS Safety Report 6203396-3 (Version None)
Quarter: 2009Q2

REPORT INFORMATION
  Report Type: 
  Country: None (occurrence: None)
  Receive Date: 20090527
  Receipt Date: 20090515
  Transmission Date: 20091009
  Serious: Yes (Hospitalization)
  Sender: FDA-Public Use
  Company Number: GB-AMGEN-US342362

PATIENT
  Sex: Male

DRUGS (2)
  1. ENBREL [Suspect]
     Indication: DRUG USE FOR UNKNOWN INDICATION
     Dosage: UNKNOWN
     Dates: start: 20080601, end: 20090101
  2. NSAID'S [Concomitant]
     Dosage: UNKNOWN
     Dates: end: 20090331

REACTIONS (2)
  - DEPRESSION [None]
  - PSYCHOTIC DISORDER [None]
